FAERS Safety Report 10502524 (Version 1)
Quarter: 2014Q4

REPORT INFORMATION
  Report Type: Spontaneous
  Country: US (occurrence: US)
  Receive Date: 20141007
  Receipt Date: 20141007
  Transmission Date: 20150528
  Serious: Yes (Death, Other)
  Sender: FDA-Public Use
  Company Number: US-GILEAD-2014-0117352

PATIENT
  Age: 87 Year
  Sex: Female

DRUGS (18)
  1. ARANESP [Concomitant]
     Active Substance: DARBEPOETIN ALFA
  2. PRADAXA [Concomitant]
     Active Substance: DABIGATRAN ETEXILATE MESYLATE
  3. MAGNESIUM [Concomitant]
     Active Substance: MAGNESIUM
  4. LEVOTHYROXINE [Concomitant]
     Active Substance: LEVOTHYROXINE
  5. AMIODARONE [Concomitant]
     Active Substance: AMIODARONE
  6. LOPRESSOR [Concomitant]
     Active Substance: METOPROLOL TARTRATE
  7. AZOPT [Concomitant]
     Active Substance: BRINZOLAMIDE
  8. NEXIUM [Concomitant]
     Active Substance: ESOMEPRAZOLE MAGNESIUM
  9. CITRACAL [Concomitant]
     Active Substance: CALCIUM CITRATE
  10. ZOMETA [Concomitant]
     Active Substance: ZOLEDRONIC ACID
  11. LATANOPROST. [Concomitant]
     Active Substance: LATANOPROST
  12. ADCIRCA [Concomitant]
     Active Substance: TADALAFIL
  13. XOPENEX [Concomitant]
     Active Substance: LEVALBUTEROL HYDROCHLORIDE
  14. VYTORIN [Concomitant]
     Active Substance: EZETIMIBE\SIMVASTATIN
  15. SPIRIVA [Concomitant]
     Active Substance: TIOTROPIUM BROMIDE MONOHYDRATE
  16. LETAIRIS [Suspect]
     Active Substance: AMBRISENTAN
     Indication: PULMONARY ARTERIAL HYPERTENSION
     Dosage: 10 MG, QD
     Route: 065
     Dates: start: 2014, end: 20140921
  17. NIASPAN [Concomitant]
     Active Substance: NIACIN
  18. FUROSEMIDE. [Concomitant]
     Active Substance: FUROSEMIDE

REACTIONS (1)
  - Death [Fatal]

NARRATIVE: CASE EVENT DATE: 20140921
